FAERS Safety Report 20906397 (Version 2)
Quarter: 2022Q2

REPORT INFORMATION
  Report Type: Report from Study
  Country: MX (occurrence: MX)
  Receive Date: 20220602
  Receipt Date: 20220621
  Transmission Date: 20220721
  Serious: Yes (Hospitalization, Other)
  Sender: FDA-Public Use
  Company Number: MX-TAKEDA-2022TUS036032

PATIENT
  Age: 54 Year
  Sex: Male

DRUGS (5)
  1. PONATINIB [Suspect]
     Active Substance: PONATINIB
     Indication: Acute lymphocytic leukaemia
     Dosage: 30 MILLIGRAM
     Route: 065
     Dates: start: 20190301
  2. PONATINIB [Suspect]
     Active Substance: PONATINIB
     Dosage: 45 MILLIGRAM
     Route: 048
     Dates: start: 20190901, end: 20220517
  3. BLINCYTO [Suspect]
     Active Substance: BLINATUMOMAB
     Indication: Acute lymphocytic leukaemia
     Dosage: UNK
     Route: 065
  4. TRICLOSAN [Concomitant]
     Active Substance: TRICLOSAN
     Dosage: UNK
     Route: 065
  5. METFORMIN [Concomitant]
     Active Substance: METFORMIN HYDROCHLORIDE
     Dosage: UNK
     Route: 065

REACTIONS (7)
  - Device related infection [Unknown]
  - Klebsiella infection [Unknown]
  - Immunodeficiency [Unknown]
  - Sepsis [Recovering/Resolving]
  - Hepatic failure [Unknown]
  - Myocardial infarction [Unknown]
  - Polymerase chain reaction positive [Unknown]

NARRATIVE: CASE EVENT DATE: 20220317
